FAERS Safety Report 8091024-4 (Version None)
Quarter: 2012Q1

REPORT INFORMATION
  Report Type: 
  Country: None (occurrence: None)
  Receive Date: 20120128
  Receipt Date: 20110730
  Transmission Date: 20120608
  Serious: No
  Sender: FDA-Public Use
  Company Number: US-ABBOTT-11P-163-0843040-00

PATIENT
  Age: 42 Year
  Sex: Female

DRUGS (2)
  1. HUMIRA [Suspect]
     Dosage: PEN - 1 EVERY 2 WEEKS
     Dates: start: 20090101, end: 20100101
  2. HUMIRA [Suspect]
     Indication: PSORIASIS
     Dates: start: 20110714

REACTIONS (6)
  - URTICARIA [None]
  - INJECTION SITE PAPULE [None]
  - INJECTION SITE PRURITUS [None]
  - INJECTION SITE URTICARIA [None]
  - INJECTION SITE ERYTHEMA [None]
  - CONDITION AGGRAVATED [None]
